FAERS Safety Report 4996149-5 (Version None)
Quarter: 2006Q2

REPORT INFORMATION
  Report Type: 
  Country: None (occurrence: None)
  Receive Date: 20060504
  Receipt Date: 20060419
  Transmission Date: 20061013
  Serious: Yes (Life-Threatening, Other)
  Sender: FDA-Public Use
  Company Number: OMPQ-NO-0604L-0260

PATIENT
  Age: 64 Year
  Sex: Male

DRUGS (1)
  1. OMNIPAQUE 140 [Suspect]
     Indication: STENT OCCLUSION
     Dosage: SINGLE DOSE, I.A.

REACTIONS (9)
  - ANAPHYLACTOID SHOCK [None]
  - ANGIONEUROTIC OEDEMA [None]
  - CARDIAC PROCEDURE COMPLICATION [None]
  - CONTRAST MEDIA REACTION [None]
  - HYPOTENSION [None]
  - RASH GENERALISED [None]
  - RESPIRATORY DISTRESS [None]
  - STENT OCCLUSION [None]
  - THROMBOSIS IN DEVICE [None]
